FAERS Safety Report 20980129 (Version 1)
Quarter: 2022Q2

REPORT INFORMATION
  Report Type: Spontaneous
  Country: IN (occurrence: IN)
  Receive Date: 20220620
  Receipt Date: 20220620
  Transmission Date: 20220720
  Serious: Yes (Other)
  Sender: FDA-Public Use
  Company Number: IN-SUN PHARMACEUTICAL INDUSTRIES LTD-2022R1-337338

PATIENT
  Age: 22 Year
  Sex: Female

DRUGS (2)
  1. DROSPIRENONE\ETHINYL ESTRADIOL [Suspect]
     Active Substance: DROSPIRENONE\ETHINYL ESTRADIOL
     Indication: Ovarian cyst
     Dosage: UNK (1 TAB PER DAY FOR 21 DAYS STARING FROM PERIOD DAY 1)
     Route: 048
     Dates: start: 20220424, end: 20220503
  2. DROSPIRENONE\ETHINYL ESTRADIOL [Suspect]
     Active Substance: DROSPIRENONE\ETHINYL ESTRADIOL
     Indication: Nodule

REACTIONS (5)
  - Suicidal ideation [Unknown]
  - Discomfort [Unknown]
  - Fatigue [Unknown]
  - Neuralgia [Unknown]
  - Somnolence [Unknown]
